FAERS Safety Report 6783912-3 (Version None)
Quarter: 2010Q2

REPORT INFORMATION
  Report Type: 
  Country: None (occurrence: None)
  Receive Date: 20100520
  Receipt Date: 20090810
  Transmission Date: 20101027
  Serious: Yes (Disabling, Other)
  Sender: FDA-Public Use
  Company Number: 2009253851

PATIENT
  Age: 50 Year
  Sex: Female
  Weight: 159 kg

DRUGS (2)
  1. PROVERA [Suspect]
     Indication: HORMONE REPLACEMENT THERAPY
     Dosage: 10 MG, ORAL
     Route: 048
     Dates: start: 19950101, end: 19990101
  2. LOVENOX [Concomitant]

REACTIONS (1)
  - OVARIAN CANCER [None]
